FAERS Safety Report 8156521-1 (Version None)
Quarter: 2012Q1

REPORT INFORMATION
  Report Type: 
  Country: None (occurrence: None)
  Receive Date: 20120222
  Receipt Date: 20120215
  Transmission Date: 20120608
  Serious: Yes (Other)
  Sender: FDA-Public Use
  Company Number: US-AMGEN-USASP2012005374

PATIENT
  Age: 68 Year
  Sex: Female

DRUGS (3)
  1. REVLIMID [Concomitant]
     Dosage: UNK
  2. PROCRIT [Suspect]
     Dosage: 60000 UNK, QWK
     Dates: start: 20120115
  3. PROCRIT [Suspect]
     Indication: MYELODYSPLASTIC SYNDROME
     Dosage: 40000 UNK, QWK
     Dates: start: 20110401, end: 20120114

REACTIONS (3)
  - DRUG INEFFECTIVE [None]
  - ANAEMIA [None]
  - BONE MARROW MYELOGRAM ABNORMAL [None]
